FAERS Safety Report 16655225 (Version 2)
Quarter: 2019Q3

REPORT INFORMATION
  Report Type: Report from Study
  Country: DE (occurrence: DE)
  Receive Date: 20190801
  Receipt Date: 20190813
  Transmission Date: 20191004
  Serious: Yes (Hospitalization, Other)
  Sender: FDA-Public Use
  Company Number: DE-BRISTOL-MYERS SQUIBB COMPANY-BMS-2019-072448

PATIENT
  Age: 36 Year
  Sex: Male

DRUGS (1)
  1. NIVOLUMAB [Suspect]
     Active Substance: NIVOLUMAB
     Indication: MALIGNANT MELANOMA
     Dosage: 234 MILLIGRAM, Q3WK
     Route: 042
     Dates: start: 20190322, end: 20190719

REACTIONS (1)
  - Acute polyneuropathy [Not Recovered/Not Resolved]

NARRATIVE: CASE EVENT DATE: 20190719
